FAERS Safety Report 7338585-8 (Version None)
Quarter: 2011Q1

REPORT INFORMATION
  Report Type: 
  Country: None (occurrence: None)
  Receive Date: 20110308
  Receipt Date: 20110223
  Transmission Date: 20110831
  Serious: Yes (Hospitalization, Other)
  Sender: FDA-Public Use
  Company Number: FR-ELI_LILLY_AND_COMPANY-FR201103001468

PATIENT
  Sex: Female

DRUGS (6)
  1. XANAX [Concomitant]
     Indication: DEPRESSION
     Dosage: 0.25 MG, DAILY (1/D)
     Route: 048
  2. CYMBALTA [Suspect]
     Indication: DEPRESSION
     Dosage: UNK, UNKNOWN
     Dates: start: 20081017, end: 20081019
  3. CYMBALTA [Suspect]
     Dosage: 60 MG, DAILY (1/D)
     Route: 048
     Dates: start: 20081020, end: 20081106
  4. PAROXETINE HCL [Concomitant]
     Indication: DEPRESSION
     Dosage: 1 D/F, DAILY (1/D)
     Route: 048
  5. LYSANXIA [Concomitant]
     Route: 048
  6. LEVOTHYROXINE SODIUM [Concomitant]
     Indication: HYPOTHYROIDISM
     Dosage: 100 MG, DAILY (1/D)
     Route: 048

REACTIONS (3)
  - HEADACHE [None]
  - ANGIOPATHY [None]
  - HYPOKALAEMIA [None]
